FAERS Safety Report 18566092 (Version 4)
Quarter: 2021Q2

REPORT INFORMATION
  Report Type: Spontaneous
  Country: JP (occurrence: JP)
  Receive Date: 20201201
  Receipt Date: 20210625
  Transmission Date: 20210717
  Serious: Yes (Life-Threatening, Hospitalization, Disabling, Other)
  Sender: FDA-Public Use
  Company Number: JP-009507513-2011JPN004030J

PATIENT
  Age: 72 Year
  Sex: Male
  Weight: 75 kg

DRUGS (3)
  1. INLYTA [Suspect]
     Active Substance: AXITINIB
     Indication: RENAL CELL CARCINOMA STAGE IV
     Dosage: 10 MILLIGRAM IN 2 DIVIDED DOSES, 7 X PER WEEK
     Route: 048
     Dates: start: 20200804, end: 20200825
  2. KEYTRUDA [Suspect]
     Active Substance: PEMBROLIZUMAB
     Indication: RENAL CELL CARCINOMA STAGE IV
     Dosage: 200 MILLIGRAM, Q3W
     Route: 041
     Dates: start: 20200804, end: 20200825
  3. INLYTA [Suspect]
     Active Substance: AXITINIB
     Dosage: 6 MILLIGRAM IN 2 DIVIDED DOSES, 7 X PER WEEK
     Route: 048
     Dates: start: 20200901, end: 20200914

REACTIONS (2)
  - Immune-mediated hepatitis [Recovered/Resolved]
  - Neuropathy peripheral [Recovering/Resolving]

NARRATIVE: CASE EVENT DATE: 20200915
